FAERS Safety Report 5238385-9 (Version None)
Quarter: 2007Q1

REPORT INFORMATION
  Report Type: 
  Country: None (occurrence: None)
  Receive Date: 20070215
  Receipt Date: 20070205
  Transmission Date: 20070707
  Serious: Yes (Hospitalization)
  Sender: FDA-Public Use
  Company Number: 2007UW02444

PATIENT
  Age: 90 Year
  Sex: Female

DRUGS (3)
  1. SEROQUEL [Suspect]
     Route: 048
     Dates: start: 20050801
  2. ARICEPT [Concomitant]
     Indication: DEMENTIA ALZHEIMER'S TYPE
  3. NOVASEN [Concomitant]

REACTIONS (4)
  - DRUG DISPENSING ERROR [None]
  - LOSS OF CONSCIOUSNESS [None]
  - MALAISE [None]
  - MUSCLE TIGHTNESS [None]
